FAERS Safety Report 12689926 (Version 1)
Quarter: 2016Q3

REPORT INFORMATION
  Report Type: Report from Study
  Country: FR (occurrence: FI)
  Receive Date: 20160826
  Receipt Date: 20160826
  Transmission Date: 20161109
  Serious: Yes (Other)
  Sender: FDA-Public Use
  Company Number: FI-ASCEND THERAPEUTICS-1056767

PATIENT
  Sex: Female

DRUGS (2)
  1. LEVONORGESTREL. [Concomitant]
     Active Substance: LEVONORGESTREL
  2. ESTROGEL [Suspect]
     Active Substance: ESTRADIOL
     Indication: MENOPAUSE
     Route: 062

REACTIONS (1)
  - Uterine prolapse [Unknown]
